FAERS Safety Report 6317556-4 (Version None)
Quarter: 2009Q3

REPORT INFORMATION
  Report Type: 
  Country: None (occurrence: None)
  Receive Date: 20090821
  Receipt Date: 20090814
  Transmission Date: 20100115
  Serious: Yes (Other)
  Sender: FDA-Public Use
  Company Number: FR-BAYER-200926329GPV

PATIENT
  Age: 40 Year
  Sex: Female
  Weight: 59 kg

DRUGS (2)
  1. MIRENA [Suspect]
     Indication: CONTRACEPTION
     Route: 015
     Dates: start: 20030101, end: 20050501
  2. MIRENA [Suspect]
     Route: 015
     Dates: start: 20060101, end: 20090722

REACTIONS (3)
  - BREAST CANCER [None]
  - CERVICAL DYSPLASIA [None]
  - FIBROADENOMA OF BREAST [None]
